FAERS Safety Report 20340679 (Version 1)
Quarter: 2022Q1

REPORT INFORMATION
  Report Type: Spontaneous
  Country: US (occurrence: US)
  Receive Date: 20220117
  Receipt Date: 20220117
  Transmission Date: 20220424
  Serious: Yes (Hospitalization, Other)
  Sender: FDA-Public Use
  Company Number: US-PFIZER INC-202200037143

PATIENT

DRUGS (1)
  1. TIKOSYN [Suspect]
     Active Substance: DOFETILIDE
     Indication: Sinus rhythm
     Dosage: 250 MG

REACTIONS (5)
  - Atrial fibrillation [Not Recovered/Not Resolved]
  - COVID-19 [Unknown]
  - Gait inability [Unknown]
  - Asthenia [Unknown]
  - Wrong strength [Unknown]

NARRATIVE: CASE EVENT DATE: 20210101
